FAERS Safety Report 4521168-2 (Version None)
Quarter: 2004Q4

REPORT INFORMATION
  Report Type: 
  Country: None (occurrence: None)
  Receive Date: 20041208
  Receipt Date: 20041011
  Transmission Date: 20050328
  Serious: Yes (Life-Threatening, Hospitalization)
  Sender: FDA-Public Use
  Company Number: US-BRISTOL-MYERS SQUIBB COMPANY-12727863

PATIENT
  Age: 73 Year
  Sex: Male
  Weight: 136 kg

DRUGS (13)
  1. ERBITUX [Suspect]
     Indication: RECTAL CANCER METASTATIC
     Dosage: 10CC'S.  PRESCRIBED DOSE WAS 960 MG.
     Route: 042
     Dates: start: 20040928, end: 20040928
  2. ATROPINE [Concomitant]
     Indication: PREMEDICATION
     Route: 058
     Dates: start: 20040928, end: 20040928
  3. CIMETIDINE [Concomitant]
     Indication: PREMEDICATION
     Route: 042
     Dates: start: 20040928, end: 20040928
  4. DECADRON [Concomitant]
     Indication: PREMEDICATION
     Route: 042
     Dates: start: 20040928, end: 20040928
  5. DIPHENHYDRAMINE [Concomitant]
     Indication: PREMEDICATION
     Route: 042
     Dates: start: 20040928, end: 20040928
  6. GRANISETRON HCL [Concomitant]
     Indication: PREMEDICATION
     Route: 042
     Dates: start: 20040928, end: 20040928
  7. IRINOTECAN [Concomitant]
     Route: 042
     Dates: start: 20040928
  8. GLUCOPHAGE [Concomitant]
  9. GLYBURIDE [Concomitant]
  10. K-DUR [Concomitant]
  11. LASIX [Concomitant]
  12. LOPRESSOR [Concomitant]
  13. PRINZIDE [Concomitant]

REACTIONS (18)
  - ACUTE RESPIRATORY FAILURE [None]
  - ANAPHYLACTIC REACTION [None]
  - AORTIC VALVE SCLEROSIS [None]
  - CARDIO-RESPIRATORY ARREST [None]
  - DYSKINESIA [None]
  - HAEMATOCRIT DECREASED [None]
  - HAEMOGLOBIN DECREASED [None]
  - HEPATIC FAILURE [None]
  - ISCHAEMIC HEPATITIS [None]
  - MITRAL VALVE CALCIFICATION [None]
  - MITRAL VALVE INCOMPETENCE [None]
  - MYOCARDIAL ISCHAEMIA [None]
  - NEUTROPENIA [None]
  - PLATELET COUNT DECREASED [None]
  - RENAL FAILURE ACUTE [None]
  - SUPRAVENTRICULAR TACHYCARDIA [None]
  - URINARY TRACT INFECTION [None]
  - VENTRICULAR HYPERTROPHY [None]
